FAERS Safety Report 14755880 (Version 4)
Quarter: 2022Q2

REPORT INFORMATION
  Report Type: Spontaneous
  Country: US (occurrence: US)
  Receive Date: 20180413
  Receipt Date: 20220510
  Transmission Date: 20220721
  Serious: No
  Sender: FDA-Public Use
  Company Number: US-PFIZER INC-2018150745

PATIENT
  Age: 55 Year
  Sex: Male

DRUGS (2)
  1. XELJANZ XR [Suspect]
     Active Substance: TOFACITINIB CITRATE
     Dosage: 11 MG
     Dates: start: 20180320, end: 2018
  2. XELJANZ XR [Suspect]
     Active Substance: TOFACITINIB CITRATE
     Dosage: 11 MG
     Dates: start: 20181218

REACTIONS (6)
  - Product dose omission issue [Unknown]
  - Intentional dose omission [Unknown]
  - Pain [Unknown]
  - Arthralgia [Unknown]
  - Memory impairment [Unknown]
  - Peripheral swelling [Unknown]
